FAERS Safety Report 7448485-0 (Version None)
Quarter: 2011Q2

REPORT INFORMATION
  Report Type: 
  Country: None (occurrence: None)
  Receive Date: 20110429
  Receipt Date: 20100625
  Transmission Date: 20111010
  Serious: No
  Sender: FDA-Public Use
  Company Number: US-ASTRAZENECA-2010SE29862

PATIENT
  Age: 830 Month
  Sex: Male
  Weight: 96.1 kg

DRUGS (9)
  1. NEXIUM [Suspect]
     Route: 048
  2. GLIPIZIDE [Concomitant]
  3. MYSOLINE [Concomitant]
  4. PLAVIX [Interacting]
     Indication: POOR PERIPHERAL CIRCULATION
     Route: 048
     Dates: start: 20090101, end: 20100101
  5. SIMVASTATIN [Concomitant]
  6. PRILOSEC [Interacting]
     Route: 048
     Dates: start: 20100201
  7. GLUCOPHAGE [Concomitant]
  8. TOPROL-XL [Concomitant]
  9. PLAVIX [Interacting]
     Indication: CARDIAC DISORDER
     Route: 048
     Dates: start: 20090101, end: 20100101

REACTIONS (5)
  - DRUG INTERACTION [None]
  - ABDOMINAL DISCOMFORT [None]
  - CHEST PAIN [None]
  - NAUSEA [None]
  - VOMITING [None]
